FAERS Safety Report 23797692 (Version 1)
Quarter: 2024Q2

REPORT INFORMATION
  Report Type: Spontaneous
  Country: CH (occurrence: CH)
  Receive Date: 20240430
  Receipt Date: 20240430
  Transmission Date: 20240716
  Serious: Yes (Hospitalization, Other)
  Sender: FDA-Public Use
  Company Number: None

PATIENT
  Age: 51 Year
  Sex: Female

DRUGS (2)
  1. OPDIVO [Suspect]
     Active Substance: NIVOLUMAB
     Indication: Fibrosarcoma metastatic
     Route: 042
     Dates: start: 20240308, end: 20240308
  2. VOTRIENT [Suspect]
     Active Substance: PAZOPANIB HYDROCHLORIDE
     Indication: Fibrosarcoma metastatic
     Route: 048
     Dates: start: 20240308, end: 20240320

REACTIONS (11)
  - Diarrhoea [Recovered/Resolved]
  - Pyrexia [Unknown]
  - Rash [Recovered/Resolved]
  - Malaise [Unknown]
  - Upper respiratory tract infection [Unknown]
  - Lichenoid keratosis [Unknown]
  - Cell death [Unknown]
  - Cholestasis [Unknown]
  - Cytokine release syndrome [Unknown]
  - Rash morbilliform [Unknown]
  - Off label use [Unknown]

NARRATIVE: CASE EVENT DATE: 20240301
